FAERS Safety Report 8005432-0 (Version None)
Quarter: 2011Q4

REPORT INFORMATION
  Report Type: 
  Country: None (occurrence: None)
  Receive Date: 20111223
  Receipt Date: 20111205
  Transmission Date: 20120403
  Serious: Yes (Hospitalization)
  Sender: FDA-Public Use
  Company Number: BE-ROCHE-1019757

PATIENT
  Age: 74 Year
  Sex: Female

DRUGS (5)
  1. VEMURAFENIB [Suspect]
     Indication: METASTATIC MALIGNANT MELANOMA
     Dosage: DATE OF LAST DOSE PRIOR TO SAE: 01 DEC 2011
     Route: 048
     Dates: start: 20111130, end: 20111202
  2. ACENOCOUMAROL [Suspect]
     Indication: PRODUCT USED FOR UNKNOWN INDICATION
  3. PANTOPRAZOLE [Concomitant]
     Dates: start: 20090801
  4. ALDACTONE [Concomitant]
     Dates: start: 20111117
  5. LASIX [Concomitant]
     Dates: start: 20110301

REACTIONS (2)
  - FALL [None]
  - GENERAL PHYSICAL HEALTH DETERIORATION [None]
